FAERS Safety Report 21736347 (Version 1)
Quarter: 2022Q4

REPORT INFORMATION
  Report Type: Spontaneous
  Country: US (occurrence: US)
  Receive Date: 20221215
  Receipt Date: 20221215
  Transmission Date: 20230112
  Serious: Yes (Hospitalization)
  Sender: FDA-Public Use
  Company Number: US-BRISTOL-MYERS SQUIBB COMPANY-2022-150931

PATIENT
  Age: 89 Year
  Sex: Male
  Weight: 81.19 kg

DRUGS (1)
  1. POMALYST [Suspect]
     Active Substance: POMALIDOMIDE
     Indication: Product used for unknown indication
     Dosage: EXPIRATION :28-FEB-2026 INDICATION C90.00 DAILY ON DAYS 1-21 EVERY 28 DAYS
     Route: 048
     Dates: start: 20200824

REACTIONS (1)
  - Hospitalisation [Unknown]
